FAERS Safety Report 12465288 (Version 2)
Quarter: 2016Q2

REPORT INFORMATION
  Report Type: Report from Study
  Country: CA (occurrence: CA)
  Receive Date: 20160614
  Receipt Date: 20160615
  Transmission Date: 20160815
  Serious: Yes (Other)
  Sender: FDA-Public Use
  Company Number: PHHY2015CA157590

PATIENT
  Age: 46 Year
  Sex: Male

DRUGS (3)
  1. CICLOSPORIN [Suspect]
     Active Substance: CYCLOSPORINE
     Indication: PRODUCT USED FOR UNKNOWN INDICATION
     Dosage: 1 DF (50 MG TWICE A DAY, AND INCREASED UP TO 150 MG DAILY)
     Route: 065
  2. XOLAIR [Suspect]
     Active Substance: OMALIZUMAB
     Indication: CHRONIC SPONTANEOUS URTICARIA
     Dosage: 300 MG, EVERY 4 WEEKS
     Route: 058
     Dates: start: 20151127
  3. CICLOSPORIN [Suspect]
     Active Substance: CYCLOSPORINE
     Dosage: 1 DF, QD (100 OR 150 MG DAILY)
     Route: 048

REACTIONS (11)
  - Dyspnoea [Recovering/Resolving]
  - Pruritus [Unknown]
  - Eye swelling [Unknown]
  - Syncope [Unknown]
  - Urticaria [Not Recovered/Not Resolved]
  - Heart rate decreased [Recovering/Resolving]
  - Flushing [Recovering/Resolving]
  - Angioedema [Unknown]
  - Urticaria [Recovered/Resolved]
  - Blood pressure decreased [Recovered/Resolved]
  - Injection site pain [Unknown]

NARRATIVE: CASE EVENT DATE: 20151127
